FAERS Safety Report 8723608 (Version 2)
Quarter: 2013Q4

REPORT INFORMATION
  Report Type: Spontaneous
  Country: US (occurrence: US)
  Receive Date: 20120815
  Receipt Date: 20131101
  Transmission Date: 20140711
  Serious: No
  Sender: FDA-Public Use
  Company Number: US-009507513-1208USA004659

PATIENT
  Age: 20 Year
  Sex: Male

DRUGS (8)
  1. SAPHRIS [Suspect]
     Indication: SCHIZOPHRENIA
     Dosage: 5 MG, BID
     Route: 060
     Dates: start: 20120724, end: 20120804
  2. CLARITIN [Concomitant]
     Route: 048
  3. LURASIDONE HYDROCHLORIDE [Concomitant]
  4. PAXIL [Concomitant]
  5. VYVANSE [Concomitant]
  6. CLONIDINE [Concomitant]
  7. PERIACTIN [Concomitant]
  8. ARTANE [Concomitant]

REACTIONS (1)
  - Akathisia [Recovering/Resolving]
